FAERS Safety Report 24627723 (Version 2)
Quarter: 2024Q4

REPORT INFORMATION
  Report Type: Spontaneous
  Country: GB (occurrence: GB)
  Receive Date: 20241116
  Receipt Date: 20241129
  Transmission Date: 20250114
  Serious: Yes (Other)
  Sender: TEVA
  Company Number: GB-TEVA-VS-3264171

PATIENT

DRUGS (1)
  1. DEXAMETHASONE [Suspect]
     Active Substance: DEXAMETHASONE
     Indication: Meningioma
     Route: 065

REACTIONS (4)
  - Weight increased [Unknown]
  - Glucose tolerance impaired [Unknown]
  - Insomnia [Unknown]
  - Adrenal insufficiency [Unknown]
